FAERS Safety Report 5560779-2 (Version None)
Quarter: 2007Q4

REPORT INFORMATION
  Report Type: 
  Country: None (occurrence: None)
  Receive Date: 20071215
  Receipt Date: 20071120
  Transmission Date: 20080405
  Serious: No
  Sender: FDA-Public Use
  Company Number: US-ABBOTT-07P-163-0425568-00

PATIENT
  Sex: Female
  Weight: 71.732 kg

DRUGS (2)
  1. HUMIRA [Suspect]
     Indication: CROHN'S DISEASE
     Route: 058
     Dates: start: 20070401
  2. TOPIRAMATE [Concomitant]
     Indication: CONVULSION
     Dosage: NOT REPORTED

REACTIONS (2)
  - PRURITUS [None]
  - TINEA INFECTION [None]
